FAERS Safety Report 25962134 (Version 3)
Quarter: 2025Q4

REPORT INFORMATION
  Report Type: Spontaneous
  Country: US (occurrence: US)
  Receive Date: 20251027
  Receipt Date: 20251114
  Transmission Date: 20260118
  Serious: Yes (Other)
  Sender: NOVARTIS
  Company Number: US-002147023-NVSC2025US161038

PATIENT
  Age: 54 Year
  Sex: Female
  Weight: 100.52 kg

DRUGS (10)
  1. COSENTYX [Suspect]
     Active Substance: SECUKINUMAB
     Indication: Psoriatic arthropathy
     Dosage: 300 MG, QMO
     Route: 058
     Dates: start: 20231015, end: 20251015
  2. METOPROLOL [Concomitant]
     Active Substance: METOPROLOL
     Indication: Product used for unknown indication
     Dosage: 50 MG, QD
     Route: 048
  3. TOPAMAX [Concomitant]
     Active Substance: TOPIRAMATE
     Indication: Product used for unknown indication
     Dosage: 100 MG, QD
     Route: 048
  4. PRISTIQ EXTENDED-RELEASE [Concomitant]
     Active Substance: DESVENLAFAXINE SUCCINATE
     Indication: Product used for unknown indication
     Dosage: 25 MG, BID
     Route: 048
  5. ALENDRONATE [Concomitant]
     Active Substance: ALENDRONATE SODIUM
     Indication: Product used for unknown indication
     Dosage: 70 MG, Q3W (IN THE MORNING, AT LEAST 30 MIN BEFORE FIRST FOOD, BEVERAGE, OR MEDICATION OF DAY)
     Route: 048
     Dates: start: 20250331
  6. EZETIMIBE [Concomitant]
     Active Substance: EZETIMIBE
     Indication: Product used for unknown indication
     Dosage: 10 MG, QD
     Route: 048
  7. DICLOFENAC [Concomitant]
     Active Substance: DICLOFENAC
     Indication: Product used for unknown indication
     Dosage: UNK( APPLY TOPICALLY TO LOWER AND UPPER EXTREMETIES 4 TIMES DAILY AS DIRECTED)
     Route: 065
     Dates: start: 20250701
  8. LIDOCAINE [Concomitant]
     Active Substance: LIDOCAINE
     Indication: Product used for unknown indication
     Dosage: UNK, (APPLY ONE TO THREE PATCHES TOPICALLY TO CLEAN DRY SKIN. LEAVE ON FOR 12 HOURS THEN REMOVE)
     Route: 065
     Dates: start: 20250701
  9. PROLIA [Concomitant]
     Active Substance: DENOSUMAB
     Indication: Product used for unknown indication
     Dosage: UNK (INJECT 1 MILLILITER BY SUBCUTANEOUS ROUTE EVERY 6 MONTHS IN THE UPPER ARM)
     Route: 065
  10. GABAPENTIN [Concomitant]
     Active Substance: GABAPENTIN
     Indication: Product used for unknown indication
     Dosage: 100 MG, TID
     Route: 065

REACTIONS (4)
  - Blastomycosis [Not Recovered/Not Resolved]
  - Respiratory symptom [Not Recovered/Not Resolved]
  - Cough [Unknown]
  - Exposure to polluted soil [Not Recovered/Not Resolved]

NARRATIVE: CASE EVENT DATE: 20251008
